FAERS Safety Report 20429689 (Version 1)
Quarter: 2022Q1

REPORT INFORMATION
  Report Type: Report from Study
  Country: FR (occurrence: FR)
  Receive Date: 20220204
  Receipt Date: 20220204
  Transmission Date: 20220424
  Serious: Yes (Hospitalization)
  Sender: FDA-Public Use
  Company Number: FR-SERVIER-S19009599

PATIENT

DRUGS (8)
  1. ONCASPAR [Suspect]
     Active Substance: PEGASPARGASE
     Indication: Acute lymphocytic leukaemia
     Dosage: 1200 IU, ON D15, D43
     Route: 042
     Dates: start: 20180807, end: 20180906
  2. MERCAPTOPURINE [Suspect]
     Active Substance: MERCAPTOPURINE
     Indication: Acute lymphocytic leukaemia
     Dosage: 30 MG QD FROM D1 TO D14, D29 TO D42
     Route: 048
     Dates: start: 20180724, end: 20180904
  3. CYCLOPHOSPHAMIDE [Suspect]
     Active Substance: CYCLOPHOSPHAMIDE
     Indication: Acute lymphocytic leukaemia
     Dosage: 500 MG, ON D1, D29
     Route: 042
     Dates: start: 20180724, end: 20180822
  4. VINCRISTINE [Suspect]
     Active Substance: VINCRISTINE
     Indication: Acute lymphocytic leukaemia
     Dosage: 0.7 MG, ON D15, D22, D43, D50
     Route: 042
     Dates: start: 20180807, end: 20180913
  5. CYTARABINE [Suspect]
     Active Substance: CYTARABINE
     Indication: Acute lymphocytic leukaemia
     Dosage: 20 MG ON D3, D30
     Route: 037
     Dates: start: 20180726, end: 20180823
  6. CYTARABINE [Suspect]
     Active Substance: CYTARABINE
     Dosage: 35 MG QD FROM D3 TO D6, FROM D10 TO D13, ON D31
     Route: 042
     Dates: start: 20180726, end: 20180904
  7. METHOTREXATE [Suspect]
     Active Substance: METHOTREXATE
     Indication: Acute lymphocytic leukaemia
     Dosage: 8 MG ON D3, D30
     Route: 037
     Dates: start: 20180726, end: 20180823
  8. HYDROCORTISONE [Suspect]
     Active Substance: HYDROCORTISONE
     Indication: Acute lymphocytic leukaemia
     Dosage: 10 MG ON D3, D30
     Route: 037
     Dates: start: 20180726, end: 20180823

REACTIONS (2)
  - Sepsis [Recovered/Resolved]
  - Febrile neutropenia [Recovered/Resolved]

NARRATIVE: CASE EVENT DATE: 20180816
